FAERS Safety Report 10075477 (Version 1)
Quarter: 2014Q2

REPORT INFORMATION
  Report Type: Spontaneous
  Country: US (occurrence: None)
  Receive Date: 20140411
  Receipt Date: 20140411
  Transmission Date: 20141212
  Serious: Yes (Hospitalization)
  Sender: FDA-Public Use
  Company Number: None

PATIENT
  Age: 75 Year
  Sex: Female

DRUGS (11)
  1. ETOPOSIDE [Suspect]
     Indication: OVARIAN CANCER
     Route: 048
     Dates: start: 20140308
  2. FAMOTIDINE [Concomitant]
  3. ASPIRIN [Concomitant]
  4. ALONDROLAT [Concomitant]
  5. GLUCOSAMINE [Concomitant]
  6. ESTRA-C [Concomitant]
  7. DOCUSATE [Concomitant]
  8. MAGNESIUM [Concomitant]
  9. CITRICAL+D [Concomitant]
  10. FLAX OIL [Concomitant]
  11. VYTORIN [Concomitant]

REACTIONS (2)
  - Diarrhoea [None]
  - Gastrointestinal disorder [None]
